FAERS Safety Report 20180814 (Version 6)
Quarter: 2024Q2

REPORT INFORMATION
  Report Type: Spontaneous
  Country: AU (occurrence: None)
  Receive Date: 20211214
  Receipt Date: 20240527
  Transmission Date: 20240716
  Serious: Yes (Other)
  Sender: FDA-Public Use
  Company Number: AU-ROCHE-2335748

PATIENT
  Sex: Female

DRUGS (7)
  1. ACTEMRA [Suspect]
     Active Substance: TOCILIZUMAB
     Indication: Juvenile idiopathic arthritis
     Dosage: STRENGTH:162 MG/0.9 ML
     Route: 058
  2. ACTEMRA [Suspect]
     Active Substance: TOCILIZUMAB
     Route: 058
  3. ROSUVASTATIN [Concomitant]
     Active Substance: ROSUVASTATIN
  4. IBUPROFEN [Concomitant]
     Active Substance: IBUPROFEN
  5. ACETAMINOPHEN [Concomitant]
     Active Substance: ACETAMINOPHEN
  6. AGOMELATINE [Concomitant]
     Active Substance: AGOMELATINE
  7. PREDNISONE [Concomitant]
     Active Substance: PREDNISONE

REACTIONS (12)
  - Arthritis [Unknown]
  - Cardiac valve disease [Unknown]
  - Mitral valve incompetence [Unknown]
  - Uterine leiomyoma [Unknown]
  - Gastritis [Unknown]
  - Dyslipidaemia [Unknown]
  - Tinnitus [Unknown]
  - Insomnia [Unknown]
  - Osteoarthritis [Unknown]
  - Drug ineffective [Unknown]
  - COVID-19 [Unknown]
  - Rash [Unknown]

NARRATIVE: CASE EVENT DATE: 20230101
